FAERS Safety Report 13301159 (Version 1)
Quarter: 2017Q1

REPORT INFORMATION
  Report Type: Spontaneous
  Country: US (occurrence: US)
  Receive Date: 20170306
  Receipt Date: 20170306
  Transmission Date: 20170428
  Serious: Yes (Other)
  Sender: FDA-Public Use
  Company Number: None

PATIENT
  Sex: Female

DRUGS (1)
  1. TEARS NATURALE FREE [Suspect]
     Active Substance: DEXTRAN 70\HYPROMELLOSE 2910 (4000 MPA.S)
     Indication: DRY EYE
     Route: 047

REACTIONS (5)
  - Anxiety [None]
  - Ocular hyperaemia [None]
  - Eye irritation [None]
  - Product physical consistency issue [None]
  - Discomfort [None]

NARRATIVE: CASE EVENT DATE: 20170304
